FAERS Safety Report 7773110-9 (Version None)
Quarter: 2011Q3

REPORT INFORMATION
  Report Type: 
  Country: None (occurrence: None)
  Receive Date: 20110922
  Receipt Date: 20110720
  Transmission Date: 20111222
  Serious: Yes (Other)
  Sender: FDA-Public Use
  Company Number: US-ASTRAZENECA-2008UW01684

PATIENT
  Age: 16657 Day
  Sex: Male
  Weight: 108.9 kg

DRUGS (28)
  1. LAMICTAL [Concomitant]
     Dates: start: 20050910
  2. REMERON [Concomitant]
  3. ORUDIS [Concomitant]
  4. SEROQUEL [Suspect]
     Route: 048
     Dates: start: 20050910
  5. AMBIEN [Concomitant]
     Dates: start: 20050615, end: 20050715
  6. COLACE [Concomitant]
  7. PERCOCET [Concomitant]
  8. SEROQUEL [Suspect]
     Indication: BIPOLAR DISORDER
     Dosage: 25MG, 50M, 100MG, 300 MG
     Route: 048
     Dates: start: 20050910
  9. SEROQUEL [Suspect]
     Route: 048
     Dates: start: 20050910
  10. TEMAZEPAM [Concomitant]
     Dates: start: 20050910, end: 20070804
  11. NAMENDA [Concomitant]
     Dates: start: 20070711
  12. HYDROCHLOROTHIAZIDE [Concomitant]
  13. LASIX [Concomitant]
  14. NAPROSYN [Concomitant]
  15. VICODIN [Concomitant]
  16. ATIVAN [Concomitant]
  17. CLONOPIN [Concomitant]
     Dates: start: 20070507
  18. MEVACOR [Concomitant]
  19. SEROQUEL [Suspect]
     Route: 048
     Dates: start: 20050910
  20. WELLBUTRIN [Concomitant]
     Dates: start: 20050615
  21. NORVASC [Concomitant]
  22. FLEXERIL [Concomitant]
  23. SEROQUEL [Suspect]
     Indication: DEPRESSION
     Dosage: 25MG, 50M, 100MG, 300 MG
     Route: 048
     Dates: start: 20050910
  24. TRAZODONE HYDROCHLORIDE [Concomitant]
     Dates: start: 20060906
  25. SEROQUEL [Suspect]
     Indication: ANXIETY
     Dosage: 25MG, 50M, 100MG, 300 MG
     Route: 048
     Dates: start: 20050910
  26. PROZAC [Concomitant]
     Dosage: 30-40 MG
     Dates: start: 20050910
  27. ABILIFY [Concomitant]
     Dates: start: 20050112
  28. TORADOL [Concomitant]

REACTIONS (22)
  - HYPERTENSION [None]
  - OROPHARYNGEAL PAIN [None]
  - MANIA [None]
  - HYPERLIPIDAEMIA [None]
  - ANXIETY [None]
  - DYSPNOEA [None]
  - CARDIAC FAILURE CONGESTIVE [None]
  - PAIN IN EXTREMITY [None]
  - NIGHT SWEATS [None]
  - PAIN [None]
  - DRY MOUTH [None]
  - SCOLIOSIS [None]
  - DIABETES MELLITUS [None]
  - BACK PAIN [None]
  - ARTERIOSCLEROSIS [None]
  - CORONARY ARTERY DISEASE [None]
  - HEADACHE [None]
  - DIZZINESS [None]
  - GASTROOESOPHAGEAL REFLUX DISEASE [None]
  - WEIGHT INCREASED [None]
  - CHANGE OF BOWEL HABIT [None]
  - DEPRESSION [None]
